FAERS Safety Report 18918173 (Version 3)
Quarter: 2021Q2

REPORT INFORMATION
  Report Type: Spontaneous
  Country: US (occurrence: US)
  Receive Date: 20210220
  Receipt Date: 20210423
  Transmission Date: 20210717
  Serious: Yes (Hospitalization, Other)
  Sender: FDA-Public Use
  Company Number: US-AUROBINDO-AUR-APL-2021-006222

PATIENT
  Age: 48 Year
  Sex: Female
  Weight: 68 kg

DRUGS (4)
  1. VENLAFAXINE HYDROCHLORIDE TABLETS 75 MG [Suspect]
     Active Substance: VENLAFAXINE HYDROCHLORIDE
     Indication: DEPRESSION
     Dosage: UNK
     Route: 048
  2. VENLAFAXINE HYDROCHLORIDE TABLETS 75 MG [Suspect]
     Active Substance: VENLAFAXINE HYDROCHLORIDE
     Dosage: 75 MILLIGRAM, SELF?TAPER VENLAFAXINE OVER THE COURSE OF A MONTH
     Route: 048
     Dates: start: 2019
  3. TAMOXIFEN [Concomitant]
     Active Substance: TAMOXIFEN
     Indication: BREAST CANCER
     Dosage: UNK
     Route: 065
  4. VENLAFAXINE HYDROCHLORIDE TABLETS 75 MG [Suspect]
     Active Substance: VENLAFAXINE HYDROCHLORIDE
     Indication: MAJOR DEPRESSION
     Dosage: SELF?TAPER VENLAFAXINE OVER THE COURSE OF A MONTH
     Route: 048
     Dates: start: 2019, end: 20190101

REACTIONS (7)
  - Restlessness [Recovered/Resolved]
  - Bipolar disorder [Recovered/Resolved]
  - Withdrawal syndrome [Recovered/Resolved]
  - Medication error [Unknown]
  - Hypomania [Recovered/Resolved]
  - Irritability [Recovered/Resolved]
  - Drug withdrawal syndrome [Unknown]

NARRATIVE: CASE EVENT DATE: 2018
